FAERS Safety Report 8492831-6 (Version None)
Quarter: 2012Q3

REPORT INFORMATION
  Report Type: 
  Country: None (occurrence: None)
  Receive Date: 20120706
  Receipt Date: 20120624
  Transmission Date: 20120928
  Serious: Yes (Life-Threatening, Hospitalization)
  Sender: FDA-Public Use
  Company Number: BE-BRISTOL-MYERS SQUIBB COMPANY-16708729

PATIENT
  Age: 26 Year
  Sex: Female

DRUGS (4)
  1. AMPICILLIN [Suspect]
  2. CEFTRIAXONE [Suspect]
  3. ACYCLOVIR [Suspect]
  4. DOXYCYCLINE [Suspect]

REACTIONS (1)
  - JARISCH-HERXHEIMER REACTION [None]
